FAERS Safety Report 5356757-9 (Version None)
Quarter: 2007Q2

REPORT INFORMATION
  Report Type: 
  Country: None (occurrence: None)
  Receive Date: 20070530
  Receipt Date: 20061110
  Transmission Date: 20071010
  Serious: Yes (Hospitalization, Other)
  Sender: FDA-Public Use
  Company Number: US200608005483

PATIENT
  Sex: Male
  Weight: 70.3 kg

DRUGS (1)
  1. ZYPREXA [Suspect]
     Dates: start: 19960101, end: 20010101

REACTIONS (9)
  - ACETONAEMIA [None]
  - CONVULSION [None]
  - DIABETES MELLITUS [None]
  - DIABETIC COMA [None]
  - DIABETIC KETOACIDOSIS [None]
  - HYPOGLYCAEMIA [None]
  - KETONURIA [None]
  - METABOLIC ACIDOSIS [None]
  - METABOLIC DISORDER [None]
